FAERS Safety Report 8562711-6 (Version None)
Quarter: 2012Q3

REPORT INFORMATION
  Report Type: 
  Country: None (occurrence: None)
  Receive Date: 20120802
  Receipt Date: 20120716
  Transmission Date: 20120928
  Serious: No
  Sender: FDA-Public Use
  Company Number: US-AMGEN-USASP2012044242

PATIENT
  Age: 49 Year
  Sex: Female

DRUGS (2)
  1. ENBREL [Suspect]
     Indication: PRODUCT USED FOR UNKNOWN INDICATION
     Dosage: 50 MG, Q2WK
     Dates: start: 20080101
  2. TREXALL [Concomitant]
     Dosage: 4 MG, UNK
     Dates: start: 20080101

REACTIONS (1)
  - WHITE BLOOD CELL COUNT DECREASED [None]
